FAERS Safety Report 9727127 (Version 1)
Quarter: 2013Q4

REPORT INFORMATION
  Report Type: Spontaneous
  Country: BR (occurrence: BR)
  Receive Date: 20131203
  Receipt Date: 20131203
  Transmission Date: 20140711
  Serious: Yes (Other)
  Sender: FDA-Public Use
  Company Number: PHHY2013BR139051

PATIENT
  Age: 2 Month
  Sex: Female

DRUGS (3)
  1. TEGRETOL [Suspect]
     Dosage: (MOTHER DOSE 2 TABLETS PER DAY)
     Route: 064
  2. TEGRETOL [Suspect]
     Dosage: (MOTHER DOSE 2 TABLETS PER DAY)
  3. BELARA [Concomitant]
     Dosage: (MOTHER DOSE: 1 TABLET PER DAY)

REACTIONS (4)
  - Wheezing [Unknown]
  - Cardiac murmur [Unknown]
  - Foetal exposure during pregnancy [Unknown]
  - Exposure during breast feeding [Unknown]
